FAERS Safety Report 9440257 (Version 1)
Quarter: 2013Q3

REPORT INFORMATION
  Report Type: Report from Study
  Country: CA (occurrence: CA)
  Receive Date: 20130805
  Receipt Date: 20130805
  Transmission Date: 20140515
  Serious: Yes (Other)
  Sender: FDA-Public Use
  Company Number: PHHY2013CA059896

PATIENT
  Age: 82 Year
  Sex: Female

DRUGS (23)
  1. ACLASTA [Suspect]
     Indication: OSTEOPOROSIS
     Dosage: 5 MG, ONE PER YEAR
     Route: 042
     Dates: start: 20090817
  2. ACLASTA [Suspect]
     Dosage: 5 MG, ONE PER YEAR
     Route: 042
     Dates: start: 20100817
  3. ACLASTA [Suspect]
     Dosage: 5 MG, ONE PER YEAR
     Route: 042
     Dates: start: 20110906
  4. ACLASTA [Suspect]
     Dosage: 5 MG, ONE PER YEAR
     Route: 042
     Dates: start: 20120809, end: 20120809
  5. ACEBUTOLOL [Concomitant]
     Dosage: 200 MG, 1 PILL PER DAY EVERY MORNING
  6. APO ESOMEPRAZOLE [Concomitant]
     Dosage: 40 MG, BID IN BREAKFAST AND SUPPER
  7. DOMPERIDONE [Concomitant]
     Dosage: 10 MG, TID, 30 MIN BEFORE EACH MEAL
  8. D-TABS [Concomitant]
     Dosage: 10000 IU, QW, ON MONDAYS
  9. EURO FOLIC [Concomitant]
     Dosage: 5 MG, ONE PER DAY DURING BREAKFAST, EXCEPT THURSDAY
  10. OXAZEPAM [Concomitant]
     Dosage: 1.5 DF, 90 MIN BEFORE GOING BED
  11. SYNTHROID [Concomitant]
     Dosage: 0.1 MG, 4 TIMES PER WEEK, MORNING
  12. SYNTHROID [Concomitant]
     Dosage: 0.112 MG, 3 TIMES PER WEEK, MORNING
  13. CELEBREX [Concomitant]
     Dosage: 200 MG, 1 TIME PER DAY, DURING BREAKFAST
  14. METHOTREXATE [Concomitant]
  15. FENTANYL [Concomitant]
     Dosage: 1 DF, EVERY DAY
  16. DORZOLAMID SANDOZ [Concomitant]
     Dosage: 1 DRP, BID, 1 DROP IN THE 2 EYES, TWO TIMES PER DAY, MORNING AND NIGHT
  17. ACETAMINOPHEN [Concomitant]
     Dosage: 1000 MG, 2 PILLS 4 TIMES PER DAY IF NEEDED
  18. FORTEO [Concomitant]
     Dosage: 20 UG, 1 TIME PER DAY
     Route: 058
  19. EURO DOCUSATE C [Concomitant]
     Dosage: 2 DF, TID
  20. DUOTRAV [Concomitant]
     Dosage: 1 DRP, QD, 1 DROP IN BOTH EYES ONCE EVERY MORNING
  21. APO RAMIPRIL [Concomitant]
     Dosage: 5 MG, 1 TIME PER DAY, DURING BREAKFAST
  22. RELAXA [Concomitant]
     Dosage: 17 G, QD
  23. GRAVOL [Concomitant]

REACTIONS (2)
  - Skull fracture [Recovered/Resolved with Sequelae]
  - Drug ineffective [Unknown]
